FAERS Safety Report 23281356 (Version 4)
Quarter: 2024Q1

REPORT INFORMATION
  Report Type: Report from Study
  Country: ZA (occurrence: ZA)
  Receive Date: 20231211
  Receipt Date: 20240130
  Transmission Date: 20240410
  Serious: Yes (Other)
  Sender: FDA-Public Use
  Company Number: ZA-SA-SAC20231206000097

PATIENT
  Age: 68 Year
  Sex: Male

DRUGS (2)
  1. INSULIN GLULISINE [Suspect]
     Active Substance: INSULIN GLULISINE
     Indication: Diabetes mellitus
     Dosage: 42 U, TID; 3ML | AS-40 UNITS | BL-40 UNITS | BB-40 UNITS
     Route: 058
     Dates: start: 20081201
  2. INSULIN GLARGINE [Suspect]
     Active Substance: INSULIN GLARGINE
     Indication: Diabetes mellitus
     Dosage: 60 U, HS; 3ML | BT-60 UNITS
     Route: 058
     Dates: start: 20081201

REACTIONS (5)
  - Localised lipodystrophy [Not Recovered/Not Resolved]
  - Pain in extremity [Not Recovered/Not Resolved]
  - Arthralgia [Not Recovered/Not Resolved]
  - Blood glucose increased [Recovering/Resolving]
  - Device operational issue [Unknown]
